FAERS Safety Report 23264846 (Version 2)
Quarter: 2023Q4

REPORT INFORMATION
  Report Type: Report from Study
  Country: US (occurrence: US)
  Receive Date: 20231206
  Receipt Date: 20231222
  Transmission Date: 20240110
  Serious: Yes (Hospitalization)
  Sender: FDA-Public Use
  Company Number: US-TAKEDA-2023TUS114793

PATIENT
  Sex: Female

DRUGS (5)
  1. MARIBAVIR [Suspect]
     Active Substance: MARIBAVIR
     Indication: Cytomegalovirus infection
     Dosage: 400 MILLIGRAM, BID
     Route: 048
     Dates: start: 20231103
  2. JANUVIA [Concomitant]
     Active Substance: SITAGLIPTIN PHOSPHATE
     Indication: Product used for unknown indication
     Dosage: 50 MILLIGRAM, QD
     Route: 065
  3. ENVARSUS XR [Concomitant]
     Active Substance: TACROLIMUS
  4. PIOGLITAZONE [Concomitant]
     Active Substance: PIOGLITAZONE
  5. METHENAMINE [Concomitant]
     Active Substance: METHENAMINE

REACTIONS (1)
  - Urinary tract infection [Unknown]
